FAERS Safety Report 4847299-5 (Version None)
Quarter: 2005Q4

REPORT INFORMATION
  Report Type: 
  Country: None (occurrence: None)
  Receive Date: 20051205
  Receipt Date: 20051118
  Transmission Date: 20060501
  Serious: Yes (Death)
  Sender: FDA-Public Use
  Company Number: CTI_0862_2005

PATIENT

DRUGS (1)
  1. ZILEUTON [Suspect]
     Dosage: DF

REACTIONS (1)
  - HEPATITIS C [None]
